FAERS Safety Report 15799835 (Version 2)
Quarter: 2019Q1

REPORT INFORMATION
  Report Type: Spontaneous
  Country: PL (occurrence: PL)
  Receive Date: 20190108
  Receipt Date: 20190208
  Transmission Date: 20190417
  Serious: Yes (Other)
  Sender: FDA-Public Use
  Company Number: PL-ASTRAZENECA-2019SE01997

PATIENT
  Age: 25136 Day
  Sex: Female
  Weight: 58 kg

DRUGS (2)
  1. LYNPARZA [Suspect]
     Active Substance: OLAPARIB
     Indication: OVARIAN CANCER
     Dosage: UNKNOWN
     Route: 048
     Dates: end: 20190102
  2. LYNPARZA [Suspect]
     Active Substance: OLAPARIB
     Indication: OVARIAN CANCER
     Dosage: 800.0MG UNKNOWN
     Route: 048
     Dates: start: 20181001, end: 20181223

REACTIONS (2)
  - Interstitial lung disease [Unknown]
  - Lymphadenopathy [Unknown]

NARRATIVE: CASE EVENT DATE: 20181220
